FAERS Safety Report 6189366-2 (Version None)
Quarter: 2009Q2

REPORT INFORMATION
  Report Type: 
  Country: None (occurrence: None)
  Receive Date: 20090512
  Receipt Date: 20090504
  Transmission Date: 20091009
  Serious: No
  Sender: FDA-Public Use
  Company Number: 2009004659

PATIENT

DRUGS (2)
  1. FENTORA [Suspect]
     Indication: NEURALGIA
     Dosage: (200 MCG,3-4 TABLETS DAILY AS NEEDED), BU; (400 MCG,1-2 TABLETS DAILY AS NEEDED),BU
     Route: 002
  2. ACTIG (FENTANYL CITRATE) (LOZENGE) [Suspect]
     Indication: NEURALGIA
     Dosage: (200 MCG,3-4 LOZENGES DAILY AS NEEDED),BU
     Route: 002

REACTIONS (2)
  - DRUG PRESCRIBING ERROR [None]
  - MEDICATION ERROR [None]
